FAERS Safety Report 6033243-4 (Version None)
Quarter: 2009Q1

REPORT INFORMATION
  Report Type: 
  Country: None (occurrence: None)
  Receive Date: 20090105
  Receipt Date: 20080415
  Transmission Date: 20090719
  Serious: Yes (Other)
  Sender: FDA-Public Use
  Company Number: US-000641

PATIENT
  Age: 50 Year
  Sex: Female

DRUGS (3)
  1. MULTIHANCE [Suspect]
     Indication: COMPUTERISED TOMOGRAM
     Dosage: 15ML QD INTRAVENOUS (NOT OTHERWISE SPECIFIED)
     Route: 042
     Dates: start: 20080414, end: 20080414
  2. MULTIHANCE [Suspect]
     Indication: COMPUTERISED TOMOGRAM HEAD
     Dosage: 15ML QD INTRAVENOUS (NOT OTHERWISE SPECIFIED)
     Route: 042
     Dates: start: 20080414, end: 20080414
  3. MULTIHANCE [Suspect]
     Indication: LIP AND/OR ORAL CAVITY CANCER
     Dosage: 15ML QD INTRAVENOUS (NOT OTHERWISE SPECIFIED)
     Route: 042
     Dates: start: 20080414, end: 20080414

REACTIONS (1)
  - HYPERSENSITIVITY [None]
